FAERS Safety Report 9656646 (Version 5)
Quarter: 2013Q4

REPORT INFORMATION
  Report Type: Spontaneous
  Country: US (occurrence: US)
  Receive Date: 20131030
  Receipt Date: 20131121
  Transmission Date: 20140711
  Serious: Yes (Hospitalization)
  Sender: FDA-Public Use
  Company Number: US-JNJFOC-20131014728

PATIENT
  Age: 90 Year
  Sex: Male
  Weight: 58.51 kg

DRUGS (12)
  1. XARELTO [Suspect]
     Indication: CEREBROVASCULAR ACCIDENT PROPHYLAXIS
     Route: 048
     Dates: start: 20130827, end: 20131010
  2. XARELTO [Suspect]
     Indication: CEREBROVASCULAR ACCIDENT PROPHYLAXIS
     Route: 048
     Dates: start: 201310, end: 201310
  3. XARELTO [Suspect]
     Indication: ATRIAL FIBRILLATION
     Route: 048
     Dates: start: 20130827, end: 20131010
  4. XARELTO [Suspect]
     Indication: ATRIAL FIBRILLATION
     Route: 048
     Dates: start: 201310, end: 201310
  5. BUMETANIDE [Concomitant]
     Dosage: EVERYDAY
     Route: 048
  6. POTASSIUM CHLORIDE [Concomitant]
     Dosage: EVERYDAY WITH FOOD
     Route: 048
  7. LEVOTHYROXINE [Concomitant]
     Dosage: EVERY BEDTIME
     Route: 048
  8. XIFAXAN [Concomitant]
     Route: 048
  9. FERROUS SULPHATE [Concomitant]
     Dosage: EVERYDAY
     Route: 002
  10. TL-HEM [Concomitant]
     Route: 048
  11. TL-HEM [Concomitant]
     Route: 048
  12. RANEXA [Concomitant]
     Dosage: EVERYDAY
     Route: 048

REACTIONS (1)
  - Gastrointestinal haemorrhage [Recovered/Resolved]
